FAERS Safety Report 8854291 (Version 1)
Quarter: 2012Q4

REPORT INFORMATION
  Report Type: Spontaneous
  Country: US (occurrence: None)
  Receive Date: 20121022
  Receipt Date: 20121022
  Transmission Date: 20130627
  Serious: Yes (Other)
  Sender: FDA-Public Use
  Company Number: None

PATIENT
  Age: 76 Year
  Sex: Male

DRUGS (2)
  1. TRIAMCINOLONE [Suspect]
     Indication: CYSTOID MACULAR EDEMA
     Dosage: 1, 4-6 weeks, intraocular
     Route: 031
     Dates: start: 20121012, end: 20121012
  2. TRIAMCINOLONE [Suspect]
     Indication: POSTERIOR UVEITIS
     Dosage: 1, 4-6 weeks, intraocular
     Route: 031
     Dates: start: 20121012, end: 20121012

REACTIONS (1)
  - Pseudoendophthalmitis [None]
